FAERS Safety Report 24226423 (Version 2)
Quarter: 2024Q3

REPORT INFORMATION
  Report Type: Spontaneous
  Country: ES (occurrence: ES)
  Receive Date: 20240820
  Receipt Date: 20240823
  Transmission Date: 20241017
  Serious: Yes (Other)
  Sender: ADVANZ PHARMA
  Company Number: ES-ADVANZ PHARMA-202408006787

PATIENT

DRUGS (6)
  1. ZONEGRAN [Suspect]
     Active Substance: ZONISAMIDE
     Indication: Petit mal epilepsy
     Dosage: UNK (HARD) (THE MAXIMUM DOSE TAKEN WAS 150 MG WITH 50 MG CAPSULES), 13 YEARS AGO (STARTED IN APRIL (
     Route: 065
  2. ZONEGRAN [Suspect]
     Active Substance: ZONISAMIDE
     Indication: Migraine
  3. ZONEGRAN [Suspect]
     Active Substance: ZONISAMIDE
     Indication: Petit mal epilepsy
     Dosage: UNK
     Route: 065
  4. ZONEGRAN [Suspect]
     Active Substance: ZONISAMIDE
     Indication: Migraine
  5. MAXALT [Concomitant]
     Active Substance: RIZATRIPTAN BENZOATE
     Indication: Migraine
     Dosage: 1 DOSAGE FORM, QD
     Route: 065
  6. BOTOX [Concomitant]
     Active Substance: ONABOTULINUMTOXINA
     Indication: Migraine
     Dosage: UNK (EVERY 3-4 MONTHS)
     Route: 065

REACTIONS (20)
  - Hepatitis [Recovering/Resolving]
  - Arrhythmia [Unknown]
  - Haematoma [Unknown]
  - Asthma [Unknown]
  - Dermatitis allergic [Unknown]
  - Weight increased [Unknown]
  - Migraine with aura [Unknown]
  - Parosmia [Unknown]
  - Auditory disorder [Unknown]
  - Pyrexia [Unknown]
  - Trichotillomania [Unknown]
  - Gingival bleeding [Unknown]
  - Oral pruritus [Unknown]
  - Stomatitis [Unknown]
  - Oral mucosal exfoliation [Unknown]
  - Speech disorder [Unknown]
  - Amnesia [Unknown]
  - Blood potassium decreased [Unknown]
  - Confusional state [Recovered/Resolved]
  - Irritability [Unknown]
